FAERS Safety Report 5409031-6 (Version None)
Quarter: 2007Q3

REPORT INFORMATION
  Report Type: 
  Country: None (occurrence: None)
  Receive Date: 20070806
  Receipt Date: 20070726
  Transmission Date: 20080115
  Serious: Yes (Other)
  Sender: FDA-Public Use
  Company Number: 17087

PATIENT
  Age: 50 Year
  Sex: Male

DRUGS (12)
  1. CARBOPLATIN [Suspect]
     Indication: B-CELL LYMPHOMA
     Dates: start: 20030501
  2. CYCLOPHOSPHAMIDE [Suspect]
     Indication: B-CELL LYMPHOMA
     Dates: start: 20030501
  3. CYCLOPHOSPHAMIDE [Suspect]
     Indication: B-CELL LYMPHOMA
     Dates: start: 20050716
  4. ADRIAMYCIN PFS [Suspect]
     Indication: B-CELL LYMPHOMA
     Dates: start: 20030501
  5. IFOSFAMIDE [Suspect]
     Indication: B-CELL LYMPHOMA
     Dates: start: 20041101
  6. ETOPOSIDE [Suspect]
     Indication: B-CELL LYMPHOMA
     Dates: start: 20041101
  7. PREDNISONE TAB [Concomitant]
  8. VINCRISTINE [Concomitant]
  9. IODINE TOSITUMOMAB [Concomitant]
  10. RITUXAN [Concomitant]
  11. AMD3100 [Concomitant]
  12. NEUPOGEN [Concomitant]

REACTIONS (2)
  - MYELODYSPLASTIC SYNDROME [None]
  - THROMBOCYTOPENIA [None]
